FAERS Safety Report 7238216 (Version 8)
Quarter: 2013Q4

REPORT INFORMATION
  Report Type: Spontaneous
  Country: US (occurrence: US)
  Receive Date: 20100106
  Receipt Date: 20131126
  Transmission Date: 20140711
  Serious: Yes (Hospitalization)
  Sender: FDA-Public Use
  Company Number: US-BAYER-201010007NA

PATIENT
  Age: 31 Year
  Sex: Female
  Weight: 102.27 kg

DRUGS (10)
  1. YAZ [Suspect]
     Indication: MENORRHAGIA
     Route: 048
  2. YASMIN [Suspect]
     Indication: MENORRHAGIA
     Dosage: UNK
     Route: 048
     Dates: start: 2001, end: 2009
  3. OCELLA [Suspect]
     Indication: MENORRHAGIA
     Dosage: UNK
     Route: 048
     Dates: start: 2001, end: 2009
  4. GLUCOPHAGE [Concomitant]
     Indication: DIABETES MELLITUS
     Dosage: 500 MG (DAILY DOSE), ,
     Dates: start: 2003, end: 2010
  5. ZESTRIL [Concomitant]
     Indication: BLOOD PRESSURE MANAGEMENT
     Dosage: DAILY
     Dates: start: 2005, end: 2010
  6. BYETTA [Concomitant]
  7. IRON [Concomitant]
  8. ADVIL [Concomitant]
  9. TRAMADOL [Concomitant]
  10. LORAZEPAM [Concomitant]

REACTIONS (4)
  - Gallbladder disorder [Unknown]
  - Cholecystitis chronic [None]
  - Abdominal pain [Unknown]
  - Off label use [None]
